FAERS Safety Report 8215751-0 (Version None)
Quarter: 2012Q1

REPORT INFORMATION
  Report Type: 
  Country: None (occurrence: None)
  Receive Date: 20120316
  Receipt Date: 20120312
  Transmission Date: 20120608
  Serious: Yes (Death, Other)
  Sender: FDA-Public Use
  Company Number: US-BAYER-2011-054412

PATIENT
  Age: 81 Year
  Sex: Female

DRUGS (16)
  1. TRASYLOL [Suspect]
     Indication: AORTIC VALVE REPLACEMENT
     Dosage: UNK
  2. EPINEPHRINE [Concomitant]
     Dosage: UNK
     Dates: start: 20060926
  3. VECURONIUM BROMIDE [Concomitant]
     Dosage: UNK
     Dates: start: 20060926
  4. GLIACYTE [Concomitant]
     Dosage: 50 MG, QD
  5. ETOMIDATE [Concomitant]
     Dosage: UNK
     Dates: start: 20060926
  6. FENTANYL [Concomitant]
     Dosage: UNK
     Dates: start: 20060926
  7. GLIPIZIDE [Concomitant]
     Dosage: 10 MG, QD
  8. MULTI-VITAMIN [Concomitant]
  9. ATENOLOL W/HYDROCHLOROTHIAZIDE [Concomitant]
     Dosage: 50/25 DAILY
  10. ANCEF [Concomitant]
     Dosage: UNK
     Dates: start: 20060926
  11. TRASYLOL [Suspect]
     Indication: CORONARY ARTERY BYPASS
     Dosage: LOADING DOSE: 200CC THEN 50CC/HR CONTINOUS
     Route: 042
     Dates: start: 20060926, end: 20060926
  12. GLYBURIDE [Concomitant]
     Dosage: 5 MG, BID
  13. TRASYLOL [Suspect]
     Indication: MITRAL VALVE REPAIR
  14. SPIRONOLACTONE [Concomitant]
     Dosage: 25 MG, QD
  15. ISOFLURANE [Concomitant]
     Dosage: UNK
     Dates: start: 20060926
  16. HEPARIN [Concomitant]
     Dosage: UNK
     Dates: start: 20060226

REACTIONS (11)
  - DEATH [None]
  - RENAL IMPAIRMENT [None]
  - PAIN [None]
  - FEAR [None]
  - RENAL INJURY [None]
  - EMOTIONAL DISORDER [None]
  - STRESS [None]
  - ANXIETY [None]
  - MULTI-ORGAN FAILURE [None]
  - UNEVALUABLE EVENT [None]
  - RENAL FAILURE [None]
